FAERS Safety Report 7248740-3 (Version None)
Quarter: 2011Q1

REPORT INFORMATION
  Report Type: 
  Country: None (occurrence: None)
  Receive Date: 20110121
  Receipt Date: 20110121
  Transmission Date: 20110831
  Serious: Yes (Other)
  Sender: FDA-Public Use
  Company Number: None

PATIENT
  Age: 36 Year
  Sex: Female
  Weight: 52.1637 kg

DRUGS (2)
  1. TRI-SPRINTEC [Suspect]
     Indication: CONTRACEPTION
     Dosage: 1 DAILY BY MOUTH
     Route: 048
     Dates: start: 20080101, end: 20090101
  2. TRI-PREVIFEM [Suspect]
     Indication: POLYCYSTIC OVARIES
     Dosage: 1 DAILY BY MOUTH SPRING 2010
     Route: 048
     Dates: start: 20100101

REACTIONS (2)
  - DYSFUNCTIONAL UTERINE BLEEDING [None]
  - PRODUCT SUBSTITUTION ISSUE [None]
